FAERS Safety Report 23697753 (Version 5)
Quarter: 2025Q1

REPORT INFORMATION
  Report Type: Spontaneous
  Country: US (occurrence: US)
  Receive Date: 20240402
  Receipt Date: 20250224
  Transmission Date: 20250408
  Serious: No
  Sender: PFIZER
  Company Number: US-PFIZER INC-202400072312

PATIENT
  Age: 8 Year
  Sex: Male
  Weight: 26.9 kg

DRUGS (4)
  1. GENOTROPIN [Suspect]
     Active Substance: SOMATROPIN
     Indication: Growth hormone deficiency
     Dosage: 1 MG, 1X/DAY
     Dates: start: 20230814
  2. ASPIRIN [Concomitant]
     Active Substance: ASPIRIN
     Dosage: 81 MG, DAILY
  3. LISINOPRIL [Concomitant]
     Active Substance: LISINOPRIL
     Dosage: HALF OF THE PILL ONCE EVERY NIGHT
  4. SILDENAFIL [Concomitant]
     Active Substance: SILDENAFIL
     Dosage: EVERY 8 HOURS

REACTIONS (3)
  - Drug dose omission by device [Unknown]
  - Wrong technique in device usage process [Unknown]
  - Device breakage [Unknown]

NARRATIVE: CASE EVENT DATE: 20240318
